FAERS Safety Report 9240960 (Version 2)
Quarter: 2013Q2

REPORT INFORMATION
  Report Type: Spontaneous
  Country: CA (occurrence: CA)
  Receive Date: 20130418
  Receipt Date: 20130505
  Transmission Date: 20140414
  Serious: Yes (Hospitalization)
  Sender: FDA-Public Use
  Company Number: CA-BRISTOL-MYERS SQUIBB COMPANY-18771550

PATIENT
  Age: 68 Year
  Sex: Female
  Weight: 81.63 kg

DRUGS (15)
  1. BYETTA [Suspect]
     Indication: TYPE 2 DIABETES MELLITUS
     Dates: start: 201111
  2. METFORMIN HCL [Suspect]
  3. NOVORAPID [Suspect]
  4. APO-FUROSEMIDE [Concomitant]
  5. MELOXICAM [Concomitant]
  6. BISOPROLOL [Concomitant]
  7. RABEPRAZOLE [Concomitant]
  8. CYMBALTA [Concomitant]
  9. LYRICA [Concomitant]
  10. EUROFER [Concomitant]
  11. CITALOPRAM [Concomitant]
  12. LANTUS [Concomitant]
     Dosage: 1DF:100MM
  13. BABY ASPIRIN [Concomitant]
  14. VITAMIN C [Concomitant]
  15. VITAMIN B12 [Concomitant]

REACTIONS (4)
  - Urinary incontinence [Not Recovered/Not Resolved]
  - Weight decreased [Not Recovered/Not Resolved]
  - Fall [Unknown]
  - Depressed mood [Unknown]
